FAERS Safety Report 8256140 (Version 2)
Quarter: 2012Q4

REPORT INFORMATION
  Report Type: 
  Country: JP (occurrence: JP)
  Receive Date: 20111121
  Receipt Date: 20120921
  Transmission Date: 20130627
  Serious: Yes (Death, Hospitalization, Other)
  Sender: FDA-Public Use
  Company Number: JP-RANBAXY-2011RR-50384

PATIENT
  Age: 10 Day
  Sex: Female

DRUGS (2)
  1. MIDAZOLAM [Suspect]
     Indication: SEDATION
     Dosage: 1 mg (0.3 mg/kg)
     Route: 040
  2. MIDAZOLAM [Suspect]
     Indication: PRODUCT USED FOR UNKNOWN INDICATION
     Dosage: 1 mg, UNK
     Route: 040

REACTIONS (1)
  - Seizure like phenomena [Recovered/Resolved]
